FAERS Safety Report 4635517-8 (Version None)
Quarter: 2005Q2

REPORT INFORMATION
  Report Type: 
  Country: None (occurrence: None)
  Receive Date: 20050414
  Receipt Date: 20050330
  Transmission Date: 20051028
  Serious: Yes (Hospitalization)
  Sender: FDA-Public Use
  Company Number: 209486

PATIENT
  Age: 55 Year
  Sex: Female
  Weight: 139.3 kg

DRUGS (21)
  1. RITUXIMAB (RITUXIMAB) CONC FOR SOLUTION FOR INFUSION [Suspect]
     Indication: RHEUMATOID ARTHRITIS
     Dosage: SEE IMAGE
     Route: 042
     Dates: start: 20040511, end: 20040527
  2. RITUXIMAB (RITUXIMAB) CONC FOR SOLUTION FOR INFUSION [Suspect]
     Indication: RHEUMATOID ARTHRITIS
     Dosage: SEE IMAGE
     Route: 042
     Dates: start: 20040915
  3. PREDNISONE [Suspect]
     Indication: RHEUMATOID ARTHRITIS
     Dosage: SEE IMAGE
     Route: 048
     Dates: start: 20040916, end: 20040928
  4. METHYLPREDNISOLONE [Suspect]
     Indication: RHEUMATOID ARTHRITIS
     Dosage: 100 MG, DAYS 1+15, INTRAVENOUS
     Route: 042
     Dates: start: 20040915
  5. PREDNISONE [Concomitant]
  6. VICODIN ES (HYDROCODONE BITARTRATE, ACETAMINOPHEN) [Concomitant]
  7. DARVOCET-N 100 (ACETAMINOPHEN, PROPOXYPHENE NAPSYLATE) [Concomitant]
  8. FOLIC ACID [Concomitant]
  9. ACETAMINOPHEN [Concomitant]
  10. VENLAFAXINE HCL [Concomitant]
  11. ALPRAZOLAM [Concomitant]
  12. PROGESTERONE [Concomitant]
  13. ESTROGENIC HORM SUBSTANCES TAB [Concomitant]
  14. AMITRIPTYLINE HYDROCHLORIDE [Concomitant]
  15. PROCHLORPERAZINE MALEATE [Concomitant]
  16. VITAMIN B COMPLEX (VITAMIN B COMPLEX) [Concomitant]
  17. DIPHENHYDRAMINE (DIPHENHYDRAMINE NOS) [Concomitant]
  18. IMODIUM [Concomitant]
  19. MECLIZINE HCL [Concomitant]
  20. HYDROCHLOROTHIAZIDE [Concomitant]
  21. METHOTREXATE [Concomitant]

REACTIONS (10)
  - DEHYDRATION [None]
  - HAEMOPHILUS INFECTION [None]
  - HYPOKALAEMIA [None]
  - HYPONATRAEMIA [None]
  - PNEUMONIA PRIMARY ATYPICAL [None]
  - PNEUMONITIS [None]
  - PULMONARY TOXICITY [None]
  - RESPIRATORY MONILIASIS [None]
  - SINUSITIS [None]
  - SPUTUM CULTURE POSITIVE [None]
